FAERS Safety Report 6827896-8 (Version None)
Quarter: 2010Q3

REPORT INFORMATION
  Report Type: 
  Country: None (occurrence: None)
  Receive Date: 20100709
  Receipt Date: 20100701
  Transmission Date: 20110219
  Serious: Yes (Hospitalization)
  Sender: FDA-Public Use
  Company Number: A0864653A

PATIENT
  Sex: Female
  Weight: 60.1 kg

DRUGS (8)
  1. NELARABINE [Suspect]
     Dosage: 650MGM2 CYCLIC
     Route: 042
     Dates: start: 20081029
  2. METHOTREXATE [Suspect]
     Route: 037
  3. CYCLOPHOSPHAMIDE [Suspect]
     Dosage: 1000MGM2 CYCLIC
     Route: 042
  4. CYTARABINE [Suspect]
     Dosage: 75MGM2 CYCLIC
  5. MERCAPTOPURINE [Suspect]
     Dosage: 60MGM2 CYCLIC
     Route: 048
  6. VINCRISTINE [Suspect]
     Dosage: 1.5MGM2 CYCLIC
     Route: 042
  7. PEG-ASPARAGINASE [Suspect]
     Dosage: 2500IU CYCLIC
     Route: 030
  8. RADIATION [Suspect]

REACTIONS (16)
  - ALANINE AMINOTRANSFERASE INCREASED [None]
  - ASTHENIA [None]
  - DECREASED APPETITE [None]
  - DEHYDRATION [None]
  - DIARRHOEA [None]
  - DYSPHAGIA [None]
  - DYSPHONIA [None]
  - GENERAL PHYSICAL HEALTH DETERIORATION [None]
  - HYPOAESTHESIA [None]
  - LARYNGEAL DISORDER [None]
  - MALAISE [None]
  - MYOPATHY [None]
  - NAUSEA [None]
  - PERIPHERAL MOTOR NEUROPATHY [None]
  - SEPSIS [None]
  - VOMITING [None]
